FAERS Safety Report 9372310 (Version 1)
Quarter: 2013Q2

REPORT INFORMATION
  Report Type: Report from Study
  Country: US (occurrence: US)
  Receive Date: 20130627
  Receipt Date: 20130627
  Transmission Date: 20140414
  Serious: Yes (Other)
  Sender: FDA-Public Use
  Company Number: US-MYLANLABS-2012S1020366

PATIENT
  Age: 26 Year
  Sex: Male
  Weight: 124.74 kg

DRUGS (12)
  1. CLOZAPINE TABLETS [Suspect]
     Route: 048
     Dates: end: 20120920
  2. CLOZAPINE TABLETS [Suspect]
     Route: 048
     Dates: end: 20120920
  3. CLOZAPINE TABLETS [Suspect]
     Route: 048
     Dates: end: 20120920
  4. ZYPREXA [Concomitant]
  5. KLONOPIN [Concomitant]
  6. ZOLOFT [Concomitant]
  7. DESYREL [Concomitant]
  8. NEURONTIN [Concomitant]
  9. LAMICTAL [Concomitant]
  10. PROTONIX [Concomitant]
  11. REVIA [Concomitant]
  12. BENZTROPINE [Concomitant]

REACTIONS (2)
  - Granulocytopenia [Not Recovered/Not Resolved]
  - Monocyte count decreased [Not Recovered/Not Resolved]
